FAERS Safety Report 5475208-7 (Version None)
Quarter: 2007Q3

REPORT INFORMATION
  Report Type: 
  Country: None (occurrence: None)
  Receive Date: 20070928
  Receipt Date: 20070912
  Transmission Date: 20080115
  Serious: Yes (Other)
  Sender: FDA-Public Use
  Company Number: 002#4#2007-00139

PATIENT
  Age: 52 Year
  Sex: Male

DRUGS (6)
  1. NEUPRO [Suspect]
     Indication: PARKINSON'S DISEASE
     Dosage: 2MG/24H,2 IN 1 D,TRANSDERMAL
     Route: 062
     Dates: start: 20070716, end: 20070729
  2. KLONOPIN [Suspect]
     Indication: SOMNOLENCE
     Dosage: ORAL
     Route: 048
  3. STALEVO 100 [Concomitant]
  4. AMANTADINE HCL [Concomitant]
  5. REQUIP [Concomitant]
  6. WELLBUTRIN [Concomitant]

REACTIONS (2)
  - INTENTIONAL OVERDOSE [None]
  - SUICIDE ATTEMPT [None]
